FAERS Safety Report 9249611 (Version 1)
Quarter: 2013Q2

REPORT INFORMATION
  Report Type: Spontaneous
  Country: US (occurrence: US)
  Receive Date: 20130423
  Receipt Date: 20130423
  Transmission Date: 20140414
  Serious: No
  Sender: FDA-Public Use
  Company Number: US-BRISTOL-MYERS SQUIBB COMPANY-17379678

PATIENT
  Age: 54 Year
  Sex: Male

DRUGS (1)
  1. YERVOY [Suspect]
     Dosage: LAST TREATMENT ON 07FEB2013

REACTIONS (4)
  - Rash [Unknown]
  - Irritability [Unknown]
  - Hypoaesthesia [Unknown]
  - Pain in extremity [Unknown]
